FAERS Safety Report 7599173-1 (Version None)
Quarter: 2011Q3

REPORT INFORMATION
  Report Type: 
  Country: None (occurrence: None)
  Receive Date: 20110711
  Receipt Date: 20110131
  Transmission Date: 20111222
  Serious: Yes (Hospitalization, Other)
  Sender: FDA-Public Use
  Company Number: US-BAYER-200939444NA

PATIENT
  Age: 51 Year
  Sex: Male
  Weight: 78.458 kg

DRUGS (52)
  1. VECURONIUM BROMIDE [Concomitant]
     Dosage: UNK
     Route: 042
     Dates: start: 20040805
  2. PHENYLEPHRINE HCL [Concomitant]
     Dosage: UNK
     Route: 042
     Dates: start: 20040805
  3. MESALAMINE [Concomitant]
     Indication: COLITIS ULCERATIVE
     Dosage: 1600 MG, TID LONG TERM USE
     Route: 048
  4. NAPROXEN SODIUM [Concomitant]
  5. LISINOPRIL [Concomitant]
     Dosage: UNK
     Dates: start: 19800101
  6. VIAGRA [Concomitant]
     Dosage: 100 MG, PRN
     Route: 048
  7. MILRINONE [Concomitant]
     Dosage: UNK
     Route: 042
     Dates: start: 20040805
  8. PREDNISONE [Concomitant]
     Indication: ARTHRITIS
     Dosage: 60 MG, QD TAPERED DOSE
     Route: 048
     Dates: end: 20040819
  9. INDOMETHACIN [Concomitant]
  10. NIFEDIPINE [Concomitant]
     Dosage: 60 MG, QD
     Route: 048
  11. CYCLOBENZAPRINE [Concomitant]
     Dosage: 10 MG, TID
     Route: 048
  12. CYCLOBENZAPRINE [Concomitant]
     Dosage: 10 MG, TID
     Route: 048
     Dates: start: 20040729, end: 20040805
  13. LANSOPRAZOLE [Concomitant]
     Dosage: 30 MG, QD
  14. PENICILLIN [Concomitant]
  15. MORPHINE [Concomitant]
     Route: 048
  16. RED BLOOD CELLS, CONCENTRATED [Concomitant]
     Dosage: 2 U, UNK
     Route: 042
     Dates: start: 20050805
  17. VANCOMYCIN [Concomitant]
     Dosage: 1 G, UNK
     Route: 042
     Dates: start: 20040805
  18. VASOPRESSIN [VASOPRESSIN] [Concomitant]
     Dosage: UNK
     Route: 042
     Dates: start: 20040805
  19. DOXYCYCLINE [Concomitant]
     Indication: INFECTION
     Dosage: 100 MG, BID
     Route: 048
  20. BALSALAZINE DISODIUM [Concomitant]
  21. HALDOL [Concomitant]
  22. MORPHINE [Concomitant]
     Route: 042
  23. RED BLOOD CELLS, CONCENTRATED [Concomitant]
     Dosage: 6U
     Route: 042
     Dates: start: 20040805
  24. FRESH FROZEN PLASMA [Concomitant]
     Dosage: 2 U, UNK
     Route: 042
  25. HEPARIN [Concomitant]
     Route: 058
  26. INSULIN [INSULIN] [Concomitant]
     Dosage: UNK
     Route: 042
     Dates: start: 20040805
  27. ACETAMINOPHEN [Concomitant]
     Dosage: 1000 MG, QID
     Route: 048
     Dates: start: 20040701
  28. GENTAMYCIN SULFATE [Concomitant]
  29. NIPRIDE [Concomitant]
     Dosage: UNK
     Route: 042
     Dates: start: 20040803
  30. PLATELETS [Concomitant]
     Dosage: UNK
     Dates: start: 20050805
  31. ETOMIDATE [Concomitant]
     Dosage: UNK
     Route: 042
     Dates: start: 20040805
  32. PROTAMINE SULFATE [Concomitant]
     Dosage: 200 MG, UNK
     Route: 042
     Dates: start: 20040805
  33. METHYLPREDNISOLONE [Concomitant]
     Dosage: 40 MG, UNK
     Route: 042
     Dates: start: 20040724
  34. ETODOLAC [Concomitant]
     Dosage: 400 MG, TID
     Route: 048
  35. PAROXETINE HCL [Concomitant]
     Indication: DEPRESSION
     Dosage: 20 MG, QD
     Route: 048
  36. TRASYLOL [Suspect]
     Indication: AORTIC VALVE REPLACEMENT
     Dosage: UNK (INITIAL DOSE)
     Route: 042
     Dates: start: 20040805, end: 20040805
  37. ATIVAN [Concomitant]
  38. VERSED [Concomitant]
     Dosage: 4 MG, UNK
     Route: 042
     Dates: start: 20040805
  39. PLATELETS [Concomitant]
     Dosage: 1 U, UNK
     Route: 042
     Dates: start: 20050805
  40. CRYOPRECIPITATES [Concomitant]
     Dosage: 100 U, UNK
     Route: 042
     Dates: start: 20050805
  41. ACETAMINOPHEN AND HYDROCODONE BITARTRATE [Concomitant]
     Indication: PAIN
     Dosage: 10/500MG AS NEEDED
     Route: 048
  42. TRASYLOL [Suspect]
     Indication: TRICUSPID VALVE REPLACEMENT
     Dosage: UNK (CONTINUOUS INFUSION)
     Route: 042
     Dates: start: 20040805, end: 20040805
  43. FENTANYL [Concomitant]
     Dosage: UNK
     Route: 042
     Dates: start: 20040805
  44. FRESH FROZEN PLASMA [Concomitant]
     Dosage: UNK
     Dates: start: 20050805
  45. HEPARIN [Concomitant]
     Dosage: 3100 U, UNK
     Route: 042
     Dates: start: 20040805
  46. DDAVP [Concomitant]
     Dosage: 24 UNK
     Dates: start: 20040805
  47. VERSED [Concomitant]
     Dosage: 2 MG, UNK
     Route: 042
     Dates: start: 20040726
  48. FENTANYL [Concomitant]
     Dosage: 100 MG, UNK
     Route: 042
     Dates: start: 20040726
  49. VIAGRA [Concomitant]
     Indication: ERECTILE DYSFUNCTION
     Dosage: LONG TERM USE
  50. LASIX [Concomitant]
     Dosage: UNK
     Route: 042
     Dates: start: 20040805
  51. NITROGLYCERIN [Concomitant]
     Dosage: UNK
     Route: 042
     Dates: start: 20040805
  52. OMEPRAZOLE [Concomitant]
     Dosage: 20 MG, QD
     Route: 048

REACTIONS (14)
  - ERECTILE DYSFUNCTION [None]
  - UNEVALUABLE EVENT [None]
  - MULTI-ORGAN FAILURE [None]
  - RENAL IMPAIRMENT [None]
  - RENAL FAILURE [None]
  - PAIN [None]
  - EMOTIONAL DISTRESS [None]
  - ANHEDONIA [None]
  - RENAL INJURY [None]
  - CARDIAC FAILURE [None]
  - STRESS [None]
  - FEAR [None]
  - ANXIETY [None]
  - INJURY [None]
